FAERS Safety Report 7989199-8 (Version None)
Quarter: 2011Q4

REPORT INFORMATION
  Report Type: 
  Country: None (occurrence: None)
  Receive Date: 20111219
  Receipt Date: 20111207
  Transmission Date: 20120403
  Serious: Yes (Other)
  Sender: FDA-Public Use
  Company Number: JP-JNJFOC-20101103807

PATIENT
  Age: 41 Year
  Sex: Female
  Weight: 52 kg

DRUGS (2)
  1. REMICADE [Suspect]
     Route: 042
     Dates: start: 20081002
  2. REMICADE [Suspect]
     Indication: CROHN'S DISEASE
     Dosage: PATIENT'S 10TH INFUSION.
     Route: 042
     Dates: start: 20100210

REACTIONS (1)
  - LYMPH NODE TUBERCULOSIS [None]
